FAERS Safety Report 11651651 (Version 1)
Quarter: 2015Q4

REPORT INFORMATION
  Report Type: Spontaneous
  Country: US (occurrence: None)
  Receive Date: 20151021
  Receipt Date: 20151021
  Transmission Date: 20160304
  Serious: Yes (Other)
  Sender: FDA-Public Use
  Company Number: None

PATIENT
  Age: 45 Year
  Sex: Female
  Weight: 81.65 kg

DRUGS (10)
  1. JANUVIA [Concomitant]
     Active Substance: SITAGLIPTIN PHOSPHATE
  2. MIRENA [Concomitant]
     Active Substance: LEVONORGESTREL
  3. CINGULAR [Concomitant]
  4. FISH OIL [Concomitant]
     Active Substance: FISH OIL
  5. TOPAMAX [Concomitant]
     Active Substance: TOPIRAMATE
  6. INVOKANA [Suspect]
     Active Substance: CANAGLIFLOZIN
     Indication: DIABETES MELLITUS
     Route: 048
  7. AMARYLL [Concomitant]
  8. PRAVASTATIN [Concomitant]
     Active Substance: PRAVASTATIN\PRAVASTATIN SODIUM
  9. IRON [Concomitant]
     Active Substance: IRON
  10. METPHORMIN [Concomitant]

REACTIONS (2)
  - Impaired work ability [None]
  - Urticaria [None]

NARRATIVE: CASE EVENT DATE: 20151017
